FAERS Safety Report 7879951-1 (Version None)
Quarter: 2011Q4

REPORT INFORMATION
  Report Type: 
  Country: None (occurrence: None)
  Receive Date: 20111101
  Receipt Date: 20111020
  Transmission Date: 20120403
  Serious: Yes (Other)
  Sender: FDA-Public Use
  Company Number: CA-ROCHE-GNE296842

PATIENT
  Sex: Female

DRUGS (26)
  1. RASILEZ [Concomitant]
  2. METFORMIN HCL [Concomitant]
  3. PREDNISONE [Concomitant]
     Indication: PRODUCT USED FOR UNKNOWN INDICATION
     Dosage: 30 MG, UNK
  4. CALCIUM [Concomitant]
     Indication: PRODUCT USED FOR UNKNOWN INDICATION
  5. DOCUSATE [Concomitant]
  6. TRAZODONE HYDROCHLORIDE [Concomitant]
  7. SPIRONOLACTONE [Concomitant]
  8. ALVESCO [Concomitant]
     Indication: PRODUCT USED FOR UNKNOWN INDICATION
  9. SPIRIVA [Concomitant]
     Indication: PRODUCT USED FOR UNKNOWN INDICATION
  10. FLONASE [Concomitant]
     Indication: PRODUCT USED FOR UNKNOWN INDICATION
  11. TRIQUILAR [Concomitant]
  12. OXEZE [Concomitant]
     Indication: PRODUCT USED FOR UNKNOWN INDICATION
  13. VITAMIN D [Concomitant]
     Indication: PRODUCT USED FOR UNKNOWN INDICATION
  14. LACTULOSE [Concomitant]
  15. ZOLEDRONOC ACID [Concomitant]
  16. VENTOLIN [Concomitant]
     Indication: PRODUCT USED FOR UNKNOWN INDICATION
  17. VERAPAMIL [Concomitant]
  18. AMPHOTERICIN B [Concomitant]
  19. IMMUNE GLOBULIN NOS [Concomitant]
  20. XOLAIR [Suspect]
     Dosage: 300 MG, Q2W
     Route: 058
     Dates: start: 20100204
  21. NEXIUM [Concomitant]
     Indication: PRODUCT USED FOR UNKNOWN INDICATION
  22. FERROUS FUMARATE [Concomitant]
  23. XOLAIR [Suspect]
     Indication: ASTHMA
     Dosage: 300 MG, Q2W
     Route: 058
     Dates: start: 20050425
  24. SYMBICORT [Concomitant]
     Indication: PRODUCT USED FOR UNKNOWN INDICATION
  25. HYDROCHLOROTHIAZIDE [Concomitant]
  26. CELEXA [Concomitant]

REACTIONS (8)
  - NASAL CONGESTION [None]
  - FOOT FRACTURE [None]
  - RIB FRACTURE [None]
  - PATHOLOGICAL FRACTURE [None]
  - NASOPHARYNGITIS [None]
  - ANKLE FRACTURE [None]
  - PHARYNGITIS [None]
  - MULTIPLE FRACTURES [None]
